FAERS Safety Report 16469646 (Version 1)
Quarter: 2019Q3

REPORT INFORMATION
  Report Type: Spontaneous
  Country: EC (occurrence: EC)
  Receive Date: 20190623
  Receipt Date: 20190623
  Transmission Date: 20191004
  Serious: Yes (Disabling)
  Sender: FDA-Public Use
  Company Number: None

PATIENT
  Age: 27 Year
  Sex: Female
  Weight: 84 kg

DRUGS (1)
  1. GLUCOFAGE [Suspect]
     Active Substance: METFORMIN HYDROCHLORIDE
     Indication: POLYCYSTIC OVARIES
     Dosage: ?          QUANTITY:1.5 TABLET(S);?
     Route: 048
     Dates: start: 20190614, end: 20190617

REACTIONS (5)
  - Diarrhoea [None]
  - Chest discomfort [None]
  - Palpitations [None]
  - Asthenia [None]
  - Therapy change [None]

NARRATIVE: CASE EVENT DATE: 20190614
